FAERS Safety Report 17653214 (Version 2)
Quarter: 2020Q2

REPORT INFORMATION
  Report Type: Spontaneous
  Country: SE (occurrence: SE)
  Receive Date: 20200409
  Receipt Date: 20200513
  Transmission Date: 20200713
  Serious: No
  Sender: FDA-Public Use
  Company Number: SE-BAUSCH-BL-2020-009673

PATIENT
  Age: 49 Year
  Sex: Female

DRUGS (37)
  1. MIANSERIN [Suspect]
     Active Substance: MIANSERIN
     Indication: SLEEP DISORDER
     Dosage: STARTED AROUND 1999 AT 10 OR 5 MG (BETWEEN APPROXIMATELY 1999-2007)
     Route: 065
  2. FOLATE [Suspect]
     Active Substance: FOLATE SODIUM
     Indication: PRODUCT USED FOR UNKNOWN INDICATION
     Route: 065
  3. SUMATRIPTAN. [Suspect]
     Active Substance: SUMATRIPTAN
     Indication: PRODUCT USED FOR UNKNOWN INDICATION
     Route: 065
  4. LEVAXIN [Suspect]
     Active Substance: LEVOTHYROXINE SODIUM
     Indication: PRODUCT USED FOR UNKNOWN INDICATION
     Route: 065
  5. TREO [Suspect]
     Active Substance: ASPIRIN\CAFFEINE
     Indication: PRODUCT USED FOR UNKNOWN INDICATION
     Dosage: UNK
     Route: 065
  6. COLECALCIFEROL [Suspect]
     Active Substance: CHOLECALCIFEROL
     Indication: PRODUCT USED FOR UNKNOWN INDICATION
     Route: 065
  7. PROPAVAN [Suspect]
     Active Substance: PROPIOMAZINE
     Indication: SLEEP DISORDER
     Route: 065
  8. METOPROLOL. [Suspect]
     Active Substance: METOPROLOL
     Indication: PRODUCT USED FOR UNKNOWN INDICATION
     Route: 065
  9. MIANSERIN [Suspect]
     Active Substance: MIANSERIN
     Indication: INSOMNIA
     Route: 065
     Dates: start: 2003, end: 2008
  10. MIANSERIN [Suspect]
     Active Substance: MIANSERIN
     Route: 065
     Dates: start: 2008
  11. UBIDECARENONE [Suspect]
     Active Substance: UBIDECARENONE
     Indication: PRODUCT USED FOR UNKNOWN INDICATION
     Route: 065
  12. VITAMIN D [Suspect]
     Active Substance: VITAMIN D NOS
     Indication: PRODUCT USED FOR UNKNOWN INDICATION
     Route: 065
  13. DESOGESTREL [Concomitant]
     Active Substance: DESOGESTREL
     Indication: PRODUCT USED FOR UNKNOWN INDICATION
     Dosage: UNK
  14. ALVEDON [Concomitant]
     Active Substance: ACETAMINOPHEN
     Indication: PRODUCT USED FOR UNKNOWN INDICATION
     Dosage: UNK
  15. AIMOVIG [Concomitant]
     Active Substance: ERENUMAB-AOOE
     Indication: PRODUCT USED FOR UNKNOWN INDICATION
     Dosage: UNK
  16. OMEPRAZOL [Suspect]
     Active Substance: OMEPRAZOLE
     Indication: PRODUCT USED FOR UNKNOWN INDICATION
     Route: 065
  17. NITRAZEPAM [Suspect]
     Active Substance: NITRAZEPAM
     Indication: SLEEP DISORDER
     Route: 065
  18. LYRICA [Suspect]
     Active Substance: PREGABALIN
     Indication: PAIN
     Dosage: UNK
     Route: 065
  19. VITAMIN B12 [Concomitant]
     Active Substance: CYANOCOBALAMIN
     Indication: PRODUCT USED FOR UNKNOWN INDICATION
     Dosage: UNK
  20. ENALAPRIL [Suspect]
     Active Substance: ENALAPRIL
     Indication: PRODUCT USED FOR UNKNOWN INDICATION
     Dosage: UNK
     Route: 065
  21. DIPROSALIC [Suspect]
     Active Substance: BETAMETHASONE DIPROPIONATE
     Indication: PSORIASIS
     Route: 065
  22. MIANSERIN [Suspect]
     Active Substance: MIANSERIN
     Dosage: PLAN WAS TO DIVIDE AND GO DOWN TO 15 MG
     Route: 065
  23. NAPROXEN. [Suspect]
     Active Substance: NAPROXEN
     Indication: PRODUCT USED FOR UNKNOWN INDICATION
     Dosage: UNK
     Route: 065
  24. FERINJECT [Suspect]
     Active Substance: FERRIC CARBOXYMALTOSE
     Indication: PRODUCT USED FOR UNKNOWN INDICATION
     Route: 065
  25. IPREN [Suspect]
     Active Substance: IBUPROFEN
     Indication: PRODUCT USED FOR UNKNOWN INDICATION
     Route: 065
  26. INOLAXOL [Suspect]
     Active Substance: HERBALS\KARAYA GUM
     Indication: PRODUCT USED FOR UNKNOWN INDICATION
     Route: 065
  27. STILNOCT [Suspect]
     Active Substance: ZOLPIDEM TARTRATE
     Indication: SLEEP DISORDER
     Route: 065
  28. MIANSERIN [Suspect]
     Active Substance: MIANSERIN
     Route: 065
     Dates: start: 2008
  29. LIOTHYRONIN [Suspect]
     Active Substance: LIOTHYRONINE SODIUM
     Indication: PRODUCT USED FOR UNKNOWN INDICATION
     Dosage: UNK
     Route: 065
  30. SAROTEN [Suspect]
     Active Substance: AMITRIPTYLINE
     Indication: PAIN
     Dosage: UNK
     Route: 065
  31. TREO COMP (ACETYLSALICYLIC ACID\CODEINE\CAFFEINE) [Suspect]
     Active Substance: ASPIRIN\CAFFEINE\CODEINE
     Indication: PRODUCT USED FOR UNKNOWN INDICATION
     Route: 065
  32. AIMOVIG [Concomitant]
     Active Substance: ERENUMAB-AOOE
     Indication: MIGRAINE
  33. MIANSERIN [Suspect]
     Active Substance: MIANSERIN
     Dosage: 20 MILLIGRAM, NOW
     Route: 065
  34. OMEGA-3 FATTY ACIDS [Suspect]
     Active Substance: OMEGA-3 FATTY ACIDS
     Indication: PRODUCT USED FOR UNKNOWN INDICATION
     Dosage: UNK
     Route: 065
  35. MELATONIN [Suspect]
     Active Substance: MELATONIN
     Indication: SLEEP DISORDER
     Dosage: UNK
     Route: 065
  36. VITAMIN C [Suspect]
     Active Substance: ASCORBIC ACID
     Indication: PRODUCT USED FOR UNKNOWN INDICATION
     Route: 065
  37. DULOXETINE. [Suspect]
     Active Substance: DULOXETINE
     Indication: PRODUCT USED FOR UNKNOWN INDICATION
     Dosage: UNK
     Route: 065

REACTIONS (7)
  - Wrong technique in product usage process [Unknown]
  - Food allergy [Unknown]
  - Incorrect product administration duration [Unknown]
  - Thyroid disorder [Not Recovered/Not Resolved]
  - Weight increased [Recovering/Resolving]
  - Off label use [Unknown]
  - Hypertension [Not Recovered/Not Resolved]
